FAERS Safety Report 6732330-2 (Version None)
Quarter: 2010Q2

REPORT INFORMATION
  Report Type: 
  Country: None (occurrence: None)
  Receive Date: 20100519
  Receipt Date: 20100507
  Transmission Date: 20101027
  Serious: Yes (Other)
  Sender: FDA-Public Use
  Company Number: US-JNJFOC-20100105699

PATIENT
  Sex: Female
  Weight: 54.43 kg

DRUGS (4)
  1. MOTRIN IB [Suspect]
     Indication: PYREXIA
     Dosage: 400-600MG ONCE
     Route: 048
  2. MOTRIN IB [Suspect]
     Indication: INFLUENZA
     Dosage: 400-600MG ONCE
     Route: 048
  3. CALCIUM WITH VITAMIN D [Concomitant]
  4. MULTI-VITAMINS [Concomitant]

REACTIONS (4)
  - DIARRHOEA [None]
  - NAUSEA [None]
  - PRODUCT QUALITY ISSUE [None]
  - VOMITING [None]
